FAERS Safety Report 20453569 (Version 1)
Quarter: 2022Q1

REPORT INFORMATION
  Report Type: Spontaneous
  Country: CA (occurrence: CA)
  Receive Date: 20220210
  Receipt Date: 20220210
  Transmission Date: 20220423
  Serious: Yes (Other)
  Sender: FDA-Public Use
  Company Number: None

PATIENT
  Age: 11 Year
  Sex: Male
  Weight: 51.7 kg

DRUGS (6)
  1. LINEZOLID [Suspect]
     Active Substance: LINEZOLID
     Indication: Streptococcal infection
     Dosage: 300 MILLIGRAM, OD
     Route: 048
  2. LINEZOLID [Suspect]
     Active Substance: LINEZOLID
     Indication: Device related infection
     Dosage: 600 MILLIGRAM, BID
     Route: 048
  3. METRONIDAZOLE [Suspect]
     Active Substance: METRONIDAZOLE
     Indication: Device related infection
     Dosage: 500 MILLIGRAM, TID
     Route: 048
  4. METRONIDAZOLE [Suspect]
     Active Substance: METRONIDAZOLE
     Indication: Streptococcal infection
  5. CEFTRIAXONE [Concomitant]
     Active Substance: CEFTRIAXONE
     Indication: Streptococcal infection
     Dosage: 500 MILLIGRAM, TID
     Route: 042
  6. CEFTRIAXONE [Concomitant]
     Active Substance: CEFTRIAXONE
     Indication: Device related infection

REACTIONS (3)
  - Neuropathy peripheral [Recovered/Resolved]
  - Treatment failure [Unknown]
  - Anaemia [Recovered/Resolved]
